FAERS Safety Report 15654167 (Version 2)
Quarter: 2018Q4

REPORT INFORMATION
  Report Type: Report from Study
  Country: ZA (occurrence: ZA)
  Receive Date: 20181125
  Receipt Date: 20181125
  Transmission Date: 20190205
  Serious: Yes (Hospitalization, Other)
  Sender: FDA-Public Use
  Company Number: PHHY2018ZA161681

PATIENT
  Sex: Female

DRUGS (3)
  1. AMITRIPTYLINE SANDOZ [Suspect]
     Active Substance: AMITRIPTYLINE
     Indication: DEPRESSION
     Dosage: 25 MG, UNK
     Route: 048
  2. BROMAZEPAM SANDOZ [Suspect]
     Active Substance: BROMAZEPAM
     Indication: STRESS
     Dosage: 3 MG, UNK
     Route: 065
  3. TAREG [Suspect]
     Active Substance: VALSARTAN
     Indication: HYPERTENSION
     Dosage: 80 MG, UNK
     Route: 065

REACTIONS (2)
  - Fluid overload [Unknown]
  - Ovarian neoplasm [Unknown]
